FAERS Safety Report 8162556-5 (Version None)
Quarter: 2012Q1

REPORT INFORMATION
  Report Type: 
  Country: None (occurrence: None)
  Receive Date: 20120224
  Receipt Date: 20110426
  Transmission Date: 20120608
  Serious: Yes (Life-Threatening, Hospitalization)
  Sender: FDA-Public Use
  Company Number: US-PFIZER INC-K201100441

PATIENT
  Sex: Female

DRUGS (2)
  1. METFORMIN [Concomitant]
     Indication: DIABETES MELLITUS
     Dosage: 2 TABLETS, QD
     Route: 048
  2. ALTACE [Suspect]
     Indication: HYPERTENSION
     Dosage: UNK
     Route: 048

REACTIONS (3)
  - BLISTER [None]
  - BODY TEMPERATURE INCREASED [None]
  - HYPERSENSITIVITY [None]
